FAERS Safety Report 23573447 (Version 1)
Quarter: 2024Q1

REPORT INFORMATION
  Report Type: Spontaneous
  Country: US (occurrence: US)
  Receive Date: 20240228
  Receipt Date: 20240228
  Transmission Date: 20240410
  Serious: No
  Sender: FDA-Public Use
  Company Number: US-ELI_LILLY_AND_COMPANY-US202402013946

PATIENT
  Age: 61 Year
  Sex: Female

DRUGS (2)
  1. REYVOW [Suspect]
     Active Substance: LASMIDITAN
     Indication: Cluster headache
     Dosage: 50 MG, UNKNOWN
     Route: 065
     Dates: start: 2021
  2. REYVOW [Suspect]
     Active Substance: LASMIDITAN
     Indication: Migraine

REACTIONS (4)
  - Brain fog [Recovered/Resolved]
  - Ear pain [Unknown]
  - Impaired driving ability [Recovered/Resolved]
  - Muscular weakness [Recovered/Resolved]
